FAERS Safety Report 13254234 (Version 2)
Quarter: 2017Q4

REPORT INFORMATION
  Report Type: Report from Study
  Country: US (occurrence: US)
  Receive Date: 20170221
  Receipt Date: 20171009
  Transmission Date: 20180320
  Serious: No
  Sender: FDA-Public Use
  Company Number: US-ALEXION PHARMACEUTICALS INC.-A201701524

PATIENT
  Age: 53 Year
  Sex: Female

DRUGS (2)
  1. STRENSIQ [Suspect]
     Active Substance: ASFOTASE ALFA
     Dosage: 80 MG, UNK (TWO TIMES PER WEEK)
     Route: 058
  2. STRENSIQ [Suspect]
     Active Substance: ASFOTASE ALFA
     Indication: HYPOPHOSPHATASIA
     Dosage: 80 MG, TIW
     Route: 058
     Dates: start: 20160223

REACTIONS (8)
  - Pain in extremity [Not Recovered/Not Resolved]
  - Product storage error [Unknown]
  - Asthenia [Not Recovered/Not Resolved]
  - Arthralgia [Not Recovered/Not Resolved]
  - Menstrual disorder [Not Recovered/Not Resolved]
  - Influenza like illness [Unknown]
  - Nausea [Unknown]
  - Inappropriate schedule of drug administration [Not Recovered/Not Resolved]

NARRATIVE: CASE EVENT DATE: 20170213
